FAERS Safety Report 8792475 (Version 2)
Quarter: 2015Q1

REPORT INFORMATION
  Report Type: Report from Study
  Country: US (occurrence: US)
  Receive Date: 20120918
  Receipt Date: 20150325
  Transmission Date: 20150721
  Serious: Yes (Death)
  Sender: FDA-Public Use
  Company Number: US-ROCHE-1125637

PATIENT
  Sex: Male

DRUGS (3)
  1. AVASTIN [Suspect]
     Active Substance: BEVACIZUMAB
     Indication: NEOPLASM
     Route: 065
     Dates: start: 20040518
  2. ALIMTA [Concomitant]
     Active Substance: PEMETREXED DISODIUM
  3. CISPLATINUM [Concomitant]
     Active Substance: CISPLATIN

REACTIONS (2)
  - Death [Fatal]
  - Off label use [Unknown]
